FAERS Safety Report 16904408 (Version 1)
Quarter: 2019Q4

REPORT INFORMATION
  Report Type: Spontaneous
  Country: US (occurrence: US)
  Receive Date: 20191010
  Receipt Date: 20191010
  Transmission Date: 20200122
  Serious: No
  Sender: FDA-Public Use
  Company Number: US-GILEAD-2019-0432453

PATIENT
  Age: 48 Year
  Sex: Male

DRUGS (1)
  1. BIKTARVY [Suspect]
     Active Substance: BICTEGRAVIR SODIUM\EMTRICITABINE\TENOFOVIR ALAFENAMIDE FUMARATE
     Indication: HIV INFECTION
     Dosage: UNK
     Route: 065
     Dates: end: 201909

REACTIONS (5)
  - Liver function test increased [Unknown]
  - Nightmare [Recovering/Resolving]
  - Abdominal distension [Recovering/Resolving]
  - Pityriasis rosea [Recovered/Resolved]
  - Abnormal dreams [Recovering/Resolving]
